FAERS Safety Report 10085372 (Version 1)
Quarter: 2014Q2

REPORT INFORMATION
  Report Type: Spontaneous
  Country: US (occurrence: US)
  Receive Date: 20140417
  Receipt Date: 20140417
  Transmission Date: 20141212
  Serious: Yes (Hospitalization, Other)
  Sender: FDA-Public Use
  Company Number: US-ABBVIE-14P-163-1225919-00

PATIENT
  Sex: Female

DRUGS (7)
  1. DEPAKOTE [Suspect]
     Indication: PRODUCT USED FOR UNKNOWN INDICATION
  2. LAMICTAL [Suspect]
     Indication: BIPOLAR DISORDER
     Route: 048
     Dates: start: 2000, end: 20130831
  3. LAMICTAL [Suspect]
     Route: 048
     Dates: start: 201402
  4. LAMOTRIGINE [Suspect]
     Indication: BIPOLAR DISORDER
  5. STAVZOR [Suspect]
     Indication: DISTURBANCE IN ATTENTION
     Route: 048
     Dates: start: 2005
  6. STAVZOR [Suspect]
     Route: 048
     Dates: start: 20130831
  7. LEVOTHYROXINE [Concomitant]
     Indication: PRODUCT USED FOR UNKNOWN INDICATION

REACTIONS (9)
  - Tachyphrenia [Recovering/Resolving]
  - Delusion [Recovering/Resolving]
  - Anxiety [Recovering/Resolving]
  - Acne [Recovering/Resolving]
  - Disturbance in attention [Recovering/Resolving]
  - Anger [Recovering/Resolving]
  - Aggression [Recovering/Resolving]
  - Overwork [Recovering/Resolving]
  - Screaming [Recovering/Resolving]
